FAERS Safety Report 16469339 (Version 2)
Quarter: 2019Q4

REPORT INFORMATION
  Report Type: Spontaneous
  Country: US (occurrence: US)
  Receive Date: 20190624
  Receipt Date: 20191125
  Transmission Date: 20200122
  Serious: Yes (Other)
  Sender: FDA-Public Use
  Company Number: US-SA-2019SA171204

PATIENT
  Age: 12 Year
  Sex: Female

DRUGS (1)
  1. DUPIXENT [Suspect]
     Active Substance: DUPILUMAB
     Indication: DERMATITIS ATOPIC
     Dosage: 200 MG, QOW
     Route: 058
     Dates: start: 20190416

REACTIONS (10)
  - Erythema [Unknown]
  - Eye pruritus [Unknown]
  - Conjunctivitis [Unknown]
  - Crying [Unknown]
  - Urticaria [Unknown]
  - Keratitis [Unknown]
  - Xerophthalmia [Unknown]
  - Pruritus [Unknown]
  - Abdominal pain upper [Unknown]
  - Emotional disorder [Unknown]

NARRATIVE: CASE EVENT DATE: 20191116
